FAERS Safety Report 4378115-6 (Version None)
Quarter: 2004Q2

REPORT INFORMATION
  Report Type: 
  Country: None (occurrence: None)
  Receive Date: 20040616
  Receipt Date: 20040608
  Transmission Date: 20050107
  Serious: Yes (Disabling)
  Sender: FDA-Public Use
  Company Number: PHBS2004PT07496

PATIENT
  Age: 39 Year
  Sex: Male
  Weight: 74 kg

DRUGS (1)
  1. LAMISIL [Suspect]
     Indication: FUNGAL INFECTION
     Dosage: 250 MG/D
     Route: 048
     Dates: start: 20030801, end: 20030801

REACTIONS (6)
  - CHROMATURIA [None]
  - DYSURIA [None]
  - FATIGUE [None]
  - MYALGIA [None]
  - PYREXIA [None]
  - SOMNOLENCE [None]
